FAERS Safety Report 17450961 (Version 1)
Quarter: 2020Q1

REPORT INFORMATION
  Report Type: Spontaneous
  Country: US (occurrence: US)
  Receive Date: 20200210
  Receipt Date: 20200210
  Transmission Date: 20200409
  Serious: Yes (Hospitalization)
  Sender: FDA-Public Use
  Company Number: None

PATIENT
  Sex: Female

DRUGS (1)
  1. TRACLEER [Suspect]
     Active Substance: BOSENTAN
     Indication: PULMONARY ARTERIAL HYPERTENSION
     Dosage: ?          OTHER FREQUENCY:1/2 TAB (16MG) BID;?
     Route: 048
     Dates: start: 20191129

REACTIONS (2)
  - Viral infection [None]
  - Respiratory failure [None]

NARRATIVE: CASE EVENT DATE: 20200201
